FAERS Safety Report 4439649-9 (Version None)
Quarter: 2004Q3

REPORT INFORMATION
  Report Type: 
  Country: None (occurrence: None)
  Receive Date: 20040830
  Receipt Date: 20040817
  Transmission Date: 20050211
  Serious: Yes (Other)
  Sender: FDA-Public Use
  Company Number: USA-2004-0016424

PATIENT
  Sex: Male

DRUGS (1)
  1. OXYCODONE HCL [Suspect]

REACTIONS (3)
  - BACK PAIN [None]
  - DRUG WITHDRAWAL SYNDROME [None]
  - LYME DISEASE [None]
